FAERS Safety Report 6508210-4 (Version None)
Quarter: 2009Q4

REPORT INFORMATION
  Report Type: 
  Country: None (occurrence: None)
  Receive Date: 20091221
  Receipt Date: 20081212
  Transmission Date: 20100525
  Serious: No
  Sender: FDA-Public Use
  Company Number: US-ASTRAZENECA-2008UW27890

PATIENT
  Sex: Female
  Weight: 70.8 kg

DRUGS (1)
  1. CRESTOR [Suspect]
     Indication: BLOOD CHOLESTEROL INCREASED
     Route: 048
     Dates: start: 20081201

REACTIONS (4)
  - ANXIETY [None]
  - BACK PAIN [None]
  - HEADACHE [None]
  - NERVOUSNESS [None]
